FAERS Safety Report 10388236 (Version 1)
Quarter: 2014Q3

REPORT INFORMATION
  Report Type: Spontaneous
  Country: US (occurrence: US)
  Receive Date: 20140815
  Receipt Date: 20140815
  Transmission Date: 20150326
  Serious: Yes (Other)
  Sender: FDA-Public Use
  Company Number: ALCN2014US004588

PATIENT
  Age: 30 Year
  Sex: Male

DRUGS (1)
  1. PREDNISOLONE ACETATE. [Suspect]
     Active Substance: PREDNISOLONE ACETATE
     Dosage: 1 DF, TID
     Route: 047

REACTIONS (9)
  - Visual acuity reduced [Recovered/Resolved]
  - Corneal infiltrates [Unknown]
  - Conjunctival hyperaemia [Recovered/Resolved]
  - Photophobia [Recovered/Resolved]
  - Keratitis fungal [Recovered/Resolved]
  - Hypopyon [Recovered/Resolved]
  - Endophthalmitis [Recovered/Resolved]
  - Anterior chamber fibrin [Recovered/Resolved]
  - Eye pain [Recovered/Resolved]
